FAERS Safety Report 11544203 (Version 1)
Quarter: 2015Q3

REPORT INFORMATION
  Report Type: Spontaneous
  Country: FR (occurrence: FR)
  Receive Date: 20150924
  Receipt Date: 20150924
  Transmission Date: 20151125
  Serious: Yes (Hospitalization)
  Sender: FDA-Public Use
  Company Number: FR-ORION CORPORATION ORION PHARMA-ENTC2015-0522

PATIENT
  Age: 65 Year
  Sex: Male

DRUGS (4)
  1. STALEVO [Suspect]
     Active Substance: CARBIDOPA\ENTACAPONE\LEVODOPA
     Indication: PARKINSON^S DISEASE
     Route: 048
  2. AZILECT [Suspect]
     Active Substance: RASAGILINE MESYLATE
     Indication: PARKINSON^S DISEASE
     Route: 048
     Dates: start: 201501
  3. REQUIP [Suspect]
     Active Substance: ROPINIROLE HYDROCHLORIDE
     Indication: PARKINSON^S DISEASE
     Route: 048
     Dates: start: 20150615
  4. GUTRON [Concomitant]
     Active Substance: MIDODRINE
     Route: 065

REACTIONS (10)
  - Cerebellar syndrome [Recovering/Resolving]
  - Confusional state [Recovering/Resolving]
  - Hyperthermia [Recovering/Resolving]
  - Diarrhoea [Recovering/Resolving]
  - VIIth nerve paralysis [Recovering/Resolving]
  - Musculoskeletal stiffness [Recovering/Resolving]
  - Coma [Recovering/Resolving]
  - Areflexia [Recovering/Resolving]
  - Parkinsonism [Recovering/Resolving]
  - Posture abnormal [Recovering/Resolving]

NARRATIVE: CASE EVENT DATE: 20150703
